FAERS Safety Report 20118893 (Version 1)
Quarter: 2021Q4

REPORT INFORMATION
  Report Type: Spontaneous
  Country: CA (occurrence: CA)
  Receive Date: 20211126
  Receipt Date: 20211126
  Transmission Date: 20220303
  Serious: Yes (Other)
  Sender: FDA-Public Use
  Company Number: CA-SA-SAC20211118001708

PATIENT

DRUGS (19)
  1. HYDROXYCHLOROQUINE SULFATE [Suspect]
     Active Substance: HYDROXYCHLOROQUINE SULFATE
  2. ARAVA [Suspect]
     Active Substance: LEFLUNOMIDE
  3. CETIRIZINE HYDROCHLORIDE [Suspect]
     Active Substance: CETIRIZINE HYDROCHLORIDE
     Dosage: 10 MG
  4. CORTISONE ACETATE [Suspect]
     Active Substance: CORTISONE ACETATE
  5. FOLIC ACID [Suspect]
     Active Substance: FOLIC ACID
     Dosage: 5 MG
  6. PREDNISONE [Suspect]
     Active Substance: PREDNISONE
  7. PSEUDOEPHEDRINE HYDROCHLORIDE [Suspect]
     Active Substance: PSEUDOEPHEDRINE HYDROCHLORIDE
  8. TOCILIZUMAB [Suspect]
     Active Substance: TOCILIZUMAB
  9. CIMZIA [Suspect]
     Active Substance: CERTOLIZUMAB PEGOL
  10. ENBREL [Suspect]
     Active Substance: ETANERCEPT
     Dosage: 5 MG
  11. FOSAMAX [Suspect]
     Active Substance: ALENDRONATE SODIUM
  12. ADALIMUMAB [Suspect]
     Active Substance: ADALIMUMAB
  13. METHOTREXATE [Suspect]
     Active Substance: METHOTREXATE
  14. ORENCIA [Suspect]
     Active Substance: ABATACEPT
  15. CETIRIZINE HYDROCHLORIDE [Suspect]
     Active Substance: CETIRIZINE HYDROCHLORIDE
  16. REMICADE [Suspect]
     Active Substance: INFLIXIMAB
  17. RITUXIMAB [Suspect]
     Active Substance: RITUXIMAB
  18. PHTHALYLSULFATHIAZOLE [Suspect]
     Active Substance: PHTHALYLSULFATHIAZOLE
  19. PREDNISONE [Concomitant]
     Active Substance: PREDNISONE

REACTIONS (8)
  - Abdominal discomfort [Recovered/Resolved]
  - Alopecia [Recovered/Resolved]
  - Pemphigus [Recovered/Resolved]
  - Rheumatoid arthritis [Recovered/Resolved]
  - Systemic lupus erythematosus [Recovered/Resolved]
  - Contraindicated product administered [Recovered/Resolved]
  - Drug ineffective [Recovered/Resolved]
  - Pain [Recovered/Resolved]
